FAERS Safety Report 21926522 (Version 1)
Quarter: 2023Q1

REPORT INFORMATION
  Report Type: Report from Study
  Country: IT (occurrence: IT)
  Receive Date: 20230130
  Receipt Date: 20230130
  Transmission Date: 20230418
  Serious: Yes (Death)
  Sender: FDA-Public Use
  Company Number: IT-SHIONOGI B.V.-2023000024

PATIENT
  Age: 76 Year
  Sex: Female

DRUGS (3)
  1. FETROJA [Suspect]
     Active Substance: CEFIDEROCOL SULFATE TOSYLATE
     Indication: Bacteraemia
     Dosage: 2 G, TID, INFUSED FOR 3 HOURS
     Route: 042
     Dates: start: 20220322
  2. FETROJA [Suspect]
     Active Substance: CEFIDEROCOL SULFATE TOSYLATE
     Indication: Salvage therapy
  3. FETROJA [Suspect]
     Active Substance: CEFIDEROCOL SULFATE TOSYLATE
     Indication: Treatment failure

REACTIONS (2)
  - Post procedural complication [Fatal]
  - Hyperbilirubinaemia [Recovered/Resolved]

NARRATIVE: CASE EVENT DATE: 20220329
